FAERS Safety Report 12483455 (Version 4)
Quarter: 2017Q1

REPORT INFORMATION
  Report Type: Report from Study
  Country: JP (occurrence: JP)
  Receive Date: 20160621
  Receipt Date: 20170127
  Transmission Date: 20170428
  Serious: Yes (Other)
  Sender: FDA-Public Use
  Company Number: JP-ROCHE-1778596

PATIENT
  Age: 81 Year
  Sex: Female

DRUGS (17)
  1. ERYTHROCIN LACTOBIONATE [Concomitant]
     Active Substance: ERYTHROMYCIN LACTOBIONATE
     Indication: ANTIBIOTIC PROPHYLAXIS
     Route: 047
     Dates: start: 20140529, end: 20150312
  2. ASPARA K [Concomitant]
     Active Substance: POTASSIUM ASPARTATE
     Indication: PROPHYLAXIS
     Dosage: 600 MG, UNK
     Route: 048
     Dates: start: 20160119, end: 20160120
  3. RANIBIZUMAB [Suspect]
     Active Substance: RANIBIZUMAB
     Route: 031
     Dates: start: 20150312, end: 20150312
  4. CRAVIT [Concomitant]
     Active Substance: LEVOFLOXACIN
     Route: 047
     Dates: start: 20160119, end: 20160329
  5. RANIBIZUMAB [Suspect]
     Active Substance: RANIBIZUMAB
     Indication: RETINAL VEIN OCCLUSION
     Route: 031
     Dates: start: 20140529, end: 20140529
  6. RANIBIZUMAB [Suspect]
     Active Substance: RANIBIZUMAB
     Route: 031
     Dates: start: 20140828, end: 20140828
  7. MYONAL (JAPAN) [Concomitant]
     Active Substance: EPERISONE HYDROCHLORIDE
     Indication: OSTEOARTHRITIS
     Route: 048
  8. TRIAMCINOLONE [Concomitant]
     Active Substance: TRIAMCINOLONE
     Indication: PRODUCT USED FOR UNKNOWN INDICATION
     Dosage: RIGHT EYE
     Route: 031
     Dates: start: 20160524
  9. RANIBIZUMAB [Suspect]
     Active Substance: RANIBIZUMAB
     Route: 031
     Dates: start: 20141209, end: 20141209
  10. CRAVIT [Concomitant]
     Active Substance: LEVOFLOXACIN
     Route: 047
     Dates: start: 20150312, end: 20150312
  11. MEIACT [Concomitant]
     Active Substance: CEFDITOREN PIVOXIL
     Indication: PROPHYLAXIS
     Route: 048
     Dates: start: 20160119, end: 20160121
  12. CRAVIT [Concomitant]
     Active Substance: LEVOFLOXACIN
     Indication: CATARACT
     Route: 047
     Dates: start: 20140828, end: 20140828
  13. TALION (JAPAN) [Concomitant]
     Active Substance: BEPOTASTINE
     Indication: PRURITUS
     Route: 048
     Dates: start: 20141120
  14. CRAVIT [Concomitant]
     Active Substance: LEVOFLOXACIN
     Route: 047
     Dates: start: 20141209, end: 20141209
  15. DEPAS [Concomitant]
     Active Substance: ETIZOLAM
     Indication: ANXIETY DISORDER
     Route: 048
  16. CRAVIT [Concomitant]
     Active Substance: LEVOFLOXACIN
     Indication: ANTIBIOTIC PROPHYLAXIS
     Route: 047
     Dates: start: 20140529, end: 20140529
  17. DAIKENCHUTO [Concomitant]
     Active Substance: HERBALS
     Indication: CONSTIPATION
     Route: 048

REACTIONS (3)
  - Ocular hypertension [Recovered/Resolved]
  - Posterior capsule opacification [Recovering/Resolving]
  - Cataract [Recovering/Resolving]

NARRATIVE: CASE EVENT DATE: 20151201
